FAERS Safety Report 17097087 (Version 1)
Quarter: 2019Q4

REPORT INFORMATION
  Report Type: Spontaneous
  Country: US (occurrence: US)
  Receive Date: 20191102
  Receipt Date: 20191102
  Transmission Date: 20200122
  Serious: Yes (Hospitalization)
  Sender: FDA-Public Use
  Company Number: None

PATIENT
  Age: 68 Year
  Sex: Female
  Weight: 75.2 kg

DRUGS (2)
  1. MK-3475 (PEMBROLIZUMAB) [Suspect]
     Active Substance: PEMBROLIZUMAB
     Dates: end: 20191002
  2. ALIMTA [Suspect]
     Active Substance: PEMETREXED DISODIUM
     Dates: end: 20191002

REACTIONS (14)
  - Pneumonia [None]
  - Interstitial lung disease [None]
  - Respiratory distress [None]
  - Hypercoagulation [None]
  - Hypoxia [None]
  - Sepsis [None]
  - Dehydration [None]
  - Oxygen saturation decreased [None]
  - Acute respiratory failure [None]
  - Radiation pneumonitis [None]
  - Transaminases increased [None]
  - Electrocardiogram ST-T segment abnormal [None]
  - Pallor [None]
  - Troponin increased [None]

NARRATIVE: CASE EVENT DATE: 20191018
